FAERS Safety Report 15778747 (Version 3)
Quarter: 2019Q1

REPORT INFORMATION
  Report Type: Spontaneous
  Country: US (occurrence: US)
  Receive Date: 20190101
  Receipt Date: 20190315
  Transmission Date: 20190417
  Serious: No
  Sender: FDA-Public Use
  Company Number: US-AMGEN-USASP2018187065

PATIENT

DRUGS (1)
  1. AIMOVIG [Suspect]
     Active Substance: ERENUMAB-AOOE
     Indication: MIGRAINE
     Dosage: UNK
     Route: 065
     Dates: start: 2018

REACTIONS (10)
  - Constipation [Recovering/Resolving]
  - Palpitations [Unknown]
  - Alopecia [Unknown]
  - Dizziness [Unknown]
  - Sleep talking [Unknown]
  - Abnormal dreams [Unknown]
  - Sleep disorder [Unknown]
  - Insomnia [Unknown]
  - Migraine [Unknown]
  - Anxiety [Unknown]

NARRATIVE: CASE EVENT DATE: 2018
